FAERS Safety Report 12382919 (Version 1)
Quarter: 2016Q2

REPORT INFORMATION
  Report Type: Spontaneous
  Country: CA (occurrence: CA)
  Receive Date: 20160518
  Receipt Date: 20160518
  Transmission Date: 20160815
  Serious: Yes (Other)
  Sender: FDA-Public Use
  Company Number: CA-BAYER-2016-089610

PATIENT

DRUGS (3)
  1. ADVAIR HFA [Suspect]
     Active Substance: FLUTICASONE PROPIONATE\SALMETEROL XINAFOATE
     Indication: CHRONIC OBSTRUCTIVE PULMONARY DISEASE
     Dosage: 1 DF, BID
     Route: 065
  2. SOTALOL. [Concomitant]
     Active Substance: SOTALOL
     Indication: ATRIAL FIBRILLATION
     Dosage: 80 MG, UNK
     Route: 065
  3. ASPIRIN. [Suspect]
     Active Substance: ASPIRIN
     Indication: INFLUENZA
     Route: 065

REACTIONS (9)
  - Productive cough [Recovering/Resolving]
  - Arrhythmia [Recovering/Resolving]
  - Pulmonary mass [Recovering/Resolving]
  - Epistaxis [Recovering/Resolving]
  - Nasopharyngitis [Recovering/Resolving]
  - Haematuria [Recovering/Resolving]
  - Dyspnoea [Recovering/Resolving]
  - Influenza [Recovering/Resolving]
  - Lung infection [Recovering/Resolving]
